APPROVED DRUG PRODUCT: DOXYCYCLINE HYCLATE
Active Ingredient: DOXYCYCLINE HYCLATE
Strength: EQ 75MG BASE
Dosage Form/Route: TABLET;ORAL
Application: A209987 | Product #001
Applicant: RISING PHARMA HOLDING INC
Approved: Oct 5, 2020 | RLD: No | RS: No | Type: DISCN